FAERS Safety Report 8239989-1 (Version None)
Quarter: 2012Q1

REPORT INFORMATION
  Report Type: 
  Country: None (occurrence: None)
  Receive Date: 20120328
  Receipt Date: 20120316
  Transmission Date: 20120608
  Serious: Yes (Hospitalization, Other)
  Sender: FDA-Public Use
  Company Number: US-SANOFI-AVENTIS-2012SA013534

PATIENT
  Age: 57 Year
  Sex: Male

DRUGS (15)
  1. TRAZODONE HCL [Concomitant]
  2. PROTONIX [Concomitant]
     Dates: start: 20030101
  3. XANAX [Concomitant]
  4. LUNESTA [Concomitant]
  5. ZOLOFT [Concomitant]
     Dates: start: 19880101
  6. AMBIEN [Suspect]
     Route: 048
     Dates: start: 20030101, end: 20100101
  7. AMBIEN [Suspect]
     Route: 048
     Dates: start: 20120201, end: 20120201
  8. UNIRETIC [Concomitant]
     Indication: HYPERTENSION
     Dates: start: 19940101
  9. AMBIEN CR [Suspect]
     Route: 048
  10. VIT C [Concomitant]
     Dates: start: 20030101
  11. PROVENTIL [Concomitant]
     Indication: ASTHMA
     Dates: start: 19600101
  12. AMBIEN [Suspect]
     Route: 048
     Dates: start: 20100101, end: 20120101
  13. ZOLPIDEM TARTRATE [Suspect]
  14. REMERON [Concomitant]
  15. VITAMIN B-12 [Concomitant]
     Route: 030
     Dates: start: 20030101

REACTIONS (9)
  - INTENTIONAL OVERDOSE [None]
  - SLEEP TALKING [None]
  - DRUG ABUSE [None]
  - PROSTATE CANCER [None]
  - ROAD TRAFFIC ACCIDENT [None]
  - ABNORMAL BEHAVIOUR [None]
  - DRUG INEFFECTIVE [None]
  - PRODUCT QUALITY ISSUE [None]
  - SOMNAMBULISM [None]
